FAERS Safety Report 9031739 (Version 2)
Quarter: 2013Q1

REPORT INFORMATION
  Report Type: Spontaneous
  Country: JP (occurrence: JP)
  Receive Date: 20130124
  Receipt Date: 20130314
  Transmission Date: 20140127
  Serious: Yes (Other)
  Sender: FDA-Public Use
  Company Number: JP-PFIZER INC-2013020306

PATIENT
  Age: 44 Year
  Sex: Female

DRUGS (4)
  1. FLUOROURACIL [Suspect]
     Indication: RECTAL CANCER METASTATIC
     Dosage: UNK
  2. IRINOTECAN [Concomitant]
     Indication: RECTAL CANCER METASTATIC
  3. FOLINIC ACID [Concomitant]
     Indication: RECTAL CANCER METASTATIC
  4. BEVACIZUMAB [Concomitant]
     Indication: RECTAL CANCER METASTATIC
     Dosage: UNK

REACTIONS (2)
  - Depressed level of consciousness [Recovering/Resolving]
  - Hyperammonaemia [Recovering/Resolving]
